FAERS Safety Report 4431773-X (Version None)
Quarter: 2004Q3

REPORT INFORMATION
  Report Type: 
  Country: None (occurrence: None)
  Receive Date: 20040825
  Receipt Date: 20040806
  Transmission Date: 20050211
  Serious: Yes (Other)
  Sender: FDA-Public Use
  Company Number: PHBS2004BE10409

PATIENT
  Age: 73 Year
  Sex: Female

DRUGS (10)
  1. MIACALCIN [Suspect]
     Indication: REFLEX SYMPATHETIC DYSTROPHY
     Dosage: UNK, UNK
     Route: 058
     Dates: start: 20040526, end: 20040614
  2. DITROPAN [Concomitant]
     Dosage: 15 MG, QD
  3. SERETIDE [Concomitant]
     Dosage: UNK, BID
  4. QVAR 40 [Concomitant]
     Dosage: UNK, QD
  5. SPIRIVA [Concomitant]
     Dosage: 18 UG, QD
  6. TOFRANIL [Concomitant]
     Dosage: 10 MG, QD
  7. FENOFIBRATE [Concomitant]
     Dosage: 200 MG, QD
  8. ACETAMINOPHEN [Concomitant]
     Dosage: 1 G, QD
  9. VALTRAN [Concomitant]
     Dosage: UNK, BID
  10. VOLTAREN [Concomitant]
     Dosage: UNK, BID

REACTIONS (5)
  - INJECTION SITE CALCIFICATION [None]
  - INJECTION SITE INFLAMMATION [None]
  - INJECTION SITE PAIN [None]
  - MYOSITIS [None]
  - SECRETION DISCHARGE [None]
